FAERS Safety Report 5160228-2 (Version None)
Quarter: 2006Q4

REPORT INFORMATION
  Report Type: 
  Country: None (occurrence: None)
  Receive Date: 20061120
  Receipt Date: 20061106
  Transmission Date: 20070319
  Serious: Yes (Other)
  Sender: FDA-Public Use
  Company Number: 2006136782

PATIENT
  Age: 46 Year
  Sex: Male
  Weight: 81.6475 kg

DRUGS (1)
  1. NEOSPORIN PLUS PAIN RELIEF MAXIMUM STRENGTH (POLYMYXIN B SULFATE, NEOM [Suspect]
     Indication: LACERATION
     Dosage: LITTLE BIT ON THE CUT ONCE, TOPICAL
     Route: 061
     Dates: start: 20061103, end: 20061103

REACTIONS (3)
  - DYSPNOEA [None]
  - HEARING IMPAIRED [None]
  - URTICARIA [None]
